FAERS Safety Report 5971954-7 (Version None)
Quarter: 2008Q4

REPORT INFORMATION
  Report Type: 
  Country: None (occurrence: None)
  Receive Date: 20081201
  Receipt Date: 20081031
  Transmission Date: 20090506
  Serious: No
  Sender: FDA-Public Use
  Company Number: US-BAYER-200831735NA

PATIENT
  Age: 29 Year
  Sex: Female
  Weight: 67 kg

DRUGS (1)
  1. MIRENA [Suspect]
     Indication: CONTRACEPTION
     Route: 015
     Dates: start: 20070817, end: 20071206

REACTIONS (5)
  - ABDOMINAL PAIN [None]
  - BACTERIAL INFECTION [None]
  - DYSFUNCTIONAL UTERINE BLEEDING [None]
  - MENORRHAGIA [None]
  - PELVIC PAIN [None]
